FAERS Safety Report 16666441 (Version 13)
Quarter: 2021Q1

REPORT INFORMATION
  Report Type: Spontaneous
  Country: CA (occurrence: CA)
  Receive Date: 20190805
  Receipt Date: 20210219
  Transmission Date: 20210419
  Serious: Yes (Other)
  Sender: FDA-Public Use
  Company Number: CA-CELLTRION INC.-2019CA021060

PATIENT

DRUGS (12)
  1. INFLECTRA [Suspect]
     Active Substance: INFLIXIMAB-DYYB
     Dosage: 5 MG/KG EVERY 2 MONTHS
     Route: 042
     Dates: start: 20201111
  2. SOLU?MEDROL [Concomitant]
     Active Substance: METHYLPREDNISOLONE SODIUM SUCCINATE
     Indication: PREMEDICATION
     Dosage: 100 MG
     Route: 042
     Dates: start: 20210105, end: 20210105
  3. VITAMINE D [Concomitant]
     Active Substance: CHOLECALCIFEROL
     Dosage: UNK, WEEKLY
     Route: 048
  4. SOLU?CORTEF [Concomitant]
     Active Substance: HYDROCORTISONE SODIUM SUCCINATE
     Indication: PREMEDICATION
     Dosage: 100 MG
     Route: 042
     Dates: start: 20210105, end: 20210105
  5. INFLECTRA [Suspect]
     Active Substance: INFLIXIMAB-DYYB
     Dosage: 10 MG/KG, AT WEEK 0, 1, 6, THEN EVERY 8 WEEKS
     Route: 042
     Dates: start: 20190525
  6. PANTOPRAZOLE [Concomitant]
     Active Substance: PANTOPRAZOLE
     Dosage: UNK
     Route: 065
  7. PREDNISONE. [Concomitant]
     Active Substance: PREDNISONE
     Dosage: UNK
     Route: 065
     Dates: start: 201811
  8. INFLECTRA [Suspect]
     Active Substance: INFLIXIMAB-DYYB
     Dosage: 5 MG/KG EVERY 2 MONTHS
     Route: 042
     Dates: start: 20210105, end: 20210105
  9. CALCIUM [Concomitant]
     Active Substance: CALCIUM
     Dosage: UNK
     Route: 065
  10. INFLECTRA [Suspect]
     Active Substance: INFLIXIMAB-DYYB
     Indication: CROHN^S DISEASE
     Dosage: 10 MG/KG, AT WEEK 0, 1, 6, THEN EVERY 8 WEEKS
     Route: 042
     Dates: start: 20190418, end: 20190723
  11. INFLECTRA [Suspect]
     Active Substance: INFLIXIMAB-DYYB
     Dosage: 10 MG/KG, AT WEEK 0, 1, 6, THEN EVERY 8 WEEKS
     Route: 042
     Dates: start: 20190425
  12. INFLECTRA [Suspect]
     Active Substance: INFLIXIMAB-DYYB
     Dosage: 10 MG/KG, AT WEEK 0, 1, 6, THEN EVERY 8 WEEKS
     Route: 042
     Dates: start: 20190723

REACTIONS (15)
  - Feeling hot [Recovered/Resolved]
  - Dyspnoea [Unknown]
  - Rash [Recovered/Resolved]
  - Rash erythematous [Recovering/Resolving]
  - Eyelid oedema [Recovered/Resolved]
  - Blood pressure fluctuation [Unknown]
  - Off label use [Unknown]
  - Hypertension [Unknown]
  - Pruritus [Recovered/Resolved]
  - Product use issue [Unknown]
  - Small intestine carcinoma [Unknown]
  - Chest discomfort [Recovered/Resolved]
  - Erythema [Recovered/Resolved]
  - Headache [Recovered/Resolved]
  - Hypertension [Unknown]

NARRATIVE: CASE EVENT DATE: 20190418
